FAERS Safety Report 5379111-2 (Version None)
Quarter: 2007Q3

REPORT INFORMATION
  Report Type: 
  Country: None (occurrence: None)
  Receive Date: 20070705
  Receipt Date: 20070625
  Transmission Date: 20080115
  Serious: Yes (Other)
  Sender: FDA-Public Use
  Company Number: GB-BRISTOL-MYERS SQUIBB COMPANY-13831136

PATIENT
  Age: 84 Year
  Sex: Male

DRUGS (3)
  1. CARBIDOPA + LEVODOPA CR [Suspect]
     Indication: PARKINSON'S DISEASE
     Dosage: ALSO TOOK IT IN 2001
     Route: 048
     Dates: start: 20060801, end: 20070601
  2. TEMAZEPAM [Concomitant]
     Dates: start: 19930101
  3. CARBIDOPA AND LEVODOPA [Concomitant]
     Dates: start: 20010101

REACTIONS (3)
  - AGGRESSION [None]
  - EXHIBITIONISM [None]
  - HYPERSEXUALITY [None]
